FAERS Safety Report 5588945-0 (Version None)
Quarter: 2007Q4

REPORT INFORMATION
  Report Type: 
  Country: None (occurrence: None)
  Receive Date: 20071211
  Receipt Date: 20071018
  Transmission Date: 20080405
  Serious: No
  Sender: FDA-Public Use
  Company Number: 002#2#2007-00268

PATIENT
  Sex: Female

DRUGS (4)
  1. NEUPRO [Suspect]
     Indication: PARKINSON'S DISEASE
     Dosage: 2MG/24H,1 IN 1 D,TRANSDERMAL ; 4MG/24H,1 IN 1 D,TRANSDERMAL
     Route: 062
     Dates: start: 20070901, end: 20070101
  2. NEUPRO [Suspect]
     Indication: PARKINSON'S DISEASE
     Dosage: 2MG/24H,1 IN 1 D,TRANSDERMAL ; 4MG/24H,1 IN 1 D,TRANSDERMAL
     Route: 062
     Dates: start: 20070101
  3. AMANTADINE HCL [Concomitant]
  4. SINEMET [Concomitant]

REACTIONS (4)
  - AGITATION [None]
  - ANXIETY [None]
  - DRUG INEFFECTIVE [None]
  - TREMOR [None]
